FAERS Safety Report 4382851-5 (Version None)
Quarter: 2004Q2

REPORT INFORMATION
  Report Type: 
  Country: None (occurrence: None)
  Receive Date: 20040617
  Receipt Date: 20040604
  Transmission Date: 20050107
  Serious: Yes (Hospitalization, Other)
  Sender: FDA-Public Use
  Company Number: US-JNJFOC-20040404789

PATIENT
  Age: 34 Year
  Sex: Female
  Weight: 80.7403 kg

DRUGS (11)
  1. REMICADE [Suspect]
     Indication: CROHN'S DISEASE
     Dosage: SEE IMAGE
     Route: 042
     Dates: start: 20030424
  2. REMICADE [Suspect]
     Indication: CROHN'S DISEASE
     Dosage: SEE IMAGE
     Route: 042
     Dates: start: 20040325
  3. REMICADE [Suspect]
     Indication: CROHN'S DISEASE
     Dosage: SEE IMAGE
     Route: 042
     Dates: start: 20040518
  4. CELEBREX [Concomitant]
  5. PRENATAL VITAMINS (PRENATAL VITAMINS) [Concomitant]
  6. LOMOTIL [Concomitant]
  7. IMODIUM [Concomitant]
  8. PENTASA [Concomitant]
  9. NEURONTIN [Concomitant]
  10. TIZANIDINE (TIZANIDINE) [Concomitant]
  11. DIAZEPAM [Concomitant]

REACTIONS (14)
  - BURNING SENSATION [None]
  - COORDINATION ABNORMAL [None]
  - DRUG EXPOSURE DURING PREGNANCY [None]
  - GASTROINTESTINAL INFECTION [None]
  - HYPOAESTHESIA [None]
  - LOSS OF CONSCIOUSNESS [None]
  - MIGRAINE WITH AURA [None]
  - MUSCLE SPASMS [None]
  - PAIN IN EXTREMITY [None]
  - PARAESTHESIA [None]
  - PREGNANCY [None]
  - PRURITUS GENERALISED [None]
  - VIRAL INFECTION [None]
  - VISUAL DISTURBANCE [None]
